FAERS Safety Report 6610155-6 (Version None)
Quarter: 2010Q1

REPORT INFORMATION
  Report Type: 
  Country: None (occurrence: None)
  Receive Date: 20100302
  Receipt Date: 20100222
  Transmission Date: 20100710
  Serious: Yes (Life-Threatening)
  Sender: FDA-Public Use
  Company Number: GB-PFIZER INC-2010022453

PATIENT
  Age: 74 Year
  Sex: Male
  Weight: 67 kg

DRUGS (6)
  1. ATORVASTATIN CALCIUM [Suspect]
     Dosage: UNK
     Route: 048
     Dates: start: 19981026, end: 20091210
  2. ACETYLSALICYLIC ACID [Concomitant]
  3. CALCICHEW-D3 [Concomitant]
  4. PREDNISOLONE [Concomitant]
     Indication: POLYMYALGIA RHEUMATICA
     Dosage: 2 MG, UNK
     Route: 048
  5. SOTALOL HYDROCHLORIDE [Concomitant]
     Indication: TACHYCARDIA
  6. ZOTON [Concomitant]

REACTIONS (1)
  - PULMONARY EMBOLISM [None]
